FAERS Safety Report 4391977-1 (Version None)
Quarter: 2004Q3

REPORT INFORMATION
  Report Type: 
  Country: None (occurrence: None)
  Receive Date: 20040701
  Receipt Date: 20040621
  Transmission Date: 20050211
  Serious: Yes (Hospitalization)
  Sender: FDA-Public Use
  Company Number: MEDI-0001745

PATIENT
  Age: 67 Year
  Sex: Female
  Weight: 64.5 kg

DRUGS (11)
  1. ETHYOL [Suspect]
     Indication: CHEMOTHERAPY
     Dosage: 500 MG, SUBCUTANEOUS
     Route: 058
     Dates: start: 20040407, end: 20040427
  2. ETHYOL [Suspect]
     Indication: RADIOTHERAPY
     Dosage: 500 MG, SUBCUTANEOUS
     Route: 058
     Dates: start: 20040407, end: 20040427
  3. ETHYOL [Suspect]
     Indication: CHEMOTHERAPY
     Dosage: 500 MG, SUBCUTANEOUS
     Route: 058
     Dates: end: 20040503
  4. ETHYOL [Suspect]
     Indication: RADIOTHERAPY
     Dosage: 500 MG, SUBCUTANEOUS
     Route: 058
     Dates: end: 20040503
  5. RADIATION THERAPY [Concomitant]
  6. ACETYLSALICYLIC ACID SRT [Concomitant]
  7. HYDROCHLOROTHIAZIDE [Concomitant]
  8. ALTACE [Concomitant]
  9. ATIVAN [Concomitant]
  10. CARBOPLATIN [Concomitant]
  11. TAXOL [Concomitant]

REACTIONS (7)
  - BURNING SENSATION [None]
  - COUGH [None]
  - NAUSEA [None]
  - PRURITUS [None]
  - PYREXIA [None]
  - SCRATCH [None]
  - VOMITING [None]
